FAERS Safety Report 8530846-X (Version None)
Quarter: 2012Q2

REPORT INFORMATION
  Report Type: 
  Country: None (occurrence: None)
  Receive Date: 20120412
  Receipt Date: 20120220
  Transmission Date: 20120825
  Serious: No
  Sender: FDA-Public Use
  Company Number: 2012S1000011

PATIENT
  Age: 64 Year
  Sex: Male
  Weight: 68.0396 kg

DRUGS (14)
  1. ASPIRIN [Concomitant]
  2. SOLU-MEDROL [Concomitant]
  3. PREDNISONE [Concomitant]
  4. CLARITIN /00917501/ [Concomitant]
  5. KRYSTEXXA [Suspect]
     Indication: GOUT
     Dosage: 8 MG;QOW;IV
     Route: 042
     Dates: start: 20120210
  6. PLAVIX [Concomitant]
  7. MEXILETINE HYDROCHLORIDE [Concomitant]
  8. ULORIC [Concomitant]
  9. LISINOPRIL [Concomitant]
  10. METOPROLOL SUCCINATE [Concomitant]
  11. QUINIDINE HCL [Concomitant]
  12. TYLENOL (CAPLET) [Concomitant]
  13. LIPITOR [Concomitant]
  14. VICODIN [Concomitant]

REACTIONS (6)
  - WEIGHT INCREASED [None]
  - DIARRHOEA [None]
  - NAUSEA [None]
  - MALAISE [None]
  - GOUT [None]
  - WEIGHT DECREASED [None]
